FAERS Safety Report 14934048 (Version 1)
Quarter: 2020Q3

REPORT INFORMATION
  Report Type: Spontaneous
  Country: DE (occurrence: DE)
  Receive Date: 20180524
  Receipt Date: 20180524
  Transmission Date: 20201105
  Serious: Yes (Hospitalization)
  Sender: FDA-Public Use
  Company Number: IND-DE-009507513-1805DEU007131

PATIENT
  Age: 91 Year
  Sex: Female

DRUGS (9)
  1. ARCOXIA [Suspect]
     Active Substance: ETORICOXIB
     Dosage: 90MG AS NEEDED
     Route: 048
  2. CANDESARTAN CILEXETIL (+) HYDROCHLOROTHIAZIDE [Concomitant]
     Active Substance: CANDESARTAN CILEXETIL\HYDROCHLOROTHIAZIDE
     Dosage: 16/12.5 MG, 1?0?0?0
  3. CYANOCOBALAMIN. [Concomitant]
     Active Substance: CYANOCOBALAMIN
     Dosage: NK
  4. REPAGLINIDE. [Concomitant]
     Active Substance: REPAGLINIDE
     Dosage: 0.5 MG, 1?1?1?0
  5. DIPYRONE [Concomitant]
     Active Substance: DIPYRONE
     Dosage: 500 MG, 1?1?0?0
  6. TORSEMIDE. [Concomitant]
     Active Substance: TORSEMIDE
     Dosage: 10 MG, 1?1?0?0
  7. AMLODIPINE [Concomitant]
     Active Substance: AMLODIPINE BESYLATE
     Dosage: 5 MG, 1?0?0?0
  8. FOLIC ACID. [Concomitant]
     Active Substance: FOLIC ACID
     Dosage: NK
  9. SPIROBETA [Concomitant]
     Active Substance: SPIRONOLACTONE
     Dosage: 50 MG, ONE IN THE MORNING EVERY 2 DAYS

REACTIONS (5)
  - Product prescribing error [Unknown]
  - General physical health deterioration [Unknown]
  - Asthenia [Unknown]
  - Oedema peripheral [Unknown]
  - Dyspnoea [Unknown]
